FAERS Safety Report 5290571-8 (Version None)
Quarter: 2007Q2

REPORT INFORMATION
  Report Type: 
  Country: None (occurrence: None)
  Receive Date: 20070409
  Receipt Date: 20070402
  Transmission Date: 20071010
  Serious: Yes (Hospitalization)
  Sender: FDA-Public Use
  Company Number: FR-AVENTIS-200711139FR

PATIENT
  Age: 63 Year
  Sex: Male

DRUGS (11)
  1. KETEK [Suspect]
     Indication: BRONCHOPNEUMONIA
     Route: 048
     Dates: start: 20070213, end: 20070216
  2. ELISOR [Concomitant]
     Route: 048
     Dates: end: 20070216
  3. COTAREG [Concomitant]
  4. ALPRESS [Concomitant]
  5. VENTOLINE                          /00139501/ [Concomitant]
  6. SYMBICORT [Concomitant]
  7. LASILIX                            /00032601/ [Concomitant]
  8. DI-ANTALVIC                        /00220901/ [Concomitant]
  9. DOLIPRANE [Concomitant]
     Indication: INFLUENZA
     Dates: start: 20070206
  10. ZECLAR [Concomitant]
     Indication: INFLUENZA
     Dates: start: 20070206
  11. ASPIRIN [Concomitant]
     Indication: INFLUENZA
     Dates: start: 20070206

REACTIONS (3)
  - OLIGURIA [None]
  - RENAL FAILURE ACUTE [None]
  - RHABDOMYOLYSIS [None]
